FAERS Safety Report 6391375-5 (Version None)
Quarter: 2009Q4

REPORT INFORMATION
  Report Type: 
  Country: None (occurrence: None)
  Receive Date: 20091006
  Receipt Date: 20091006
  Transmission Date: 20100525
  Serious: No
  Sender: FDA-Public Use
  Company Number: None

PATIENT
  Age: 60 Year
  Sex: Female
  Weight: 92.0802 kg

DRUGS (1)
  1. TRILYTE [Suspect]
     Dosage: 8-OZ. EVERY 10 MINUTES
     Dates: start: 20091004, end: 20091004

REACTIONS (2)
  - HAEMATEMESIS [None]
  - VOMITING [None]
